FAERS Safety Report 8317206-1 (Version None)
Quarter: 2012Q2

REPORT INFORMATION
  Report Type: 
  Country: None (occurrence: None)
  Receive Date: 20120427
  Receipt Date: 20120315
  Transmission Date: 20120825
  Serious: Yes (Other)
  Sender: FDA-Public Use
  Company Number: CA-UCBSA-053369

PATIENT
  Age: 43 Year
  Sex: Female
  Weight: 65.27 kg

DRUGS (10)
  1. CIMZIA [Suspect]
     Indication: RHEUMATOID ARTHRITIS
     Route: 058
     Dates: start: 20120227
  2. LEVOTHYROXINE SODIUM [Concomitant]
     Indication: HYPOTHYROIDISM
     Route: 048
     Dates: start: 19940101
  3. ACTONEL [Concomitant]
     Indication: OSTEOPOROSIS
     Route: 048
  4. DILANTIN [Concomitant]
     Indication: EPILEPSY
     Route: 048
     Dates: start: 19860101
  5. PRILOSEC [Concomitant]
     Indication: PROPHYLAXIS AGAINST GASTROINTESTINAL ULCER
     Route: 048
  6. PREDNISONE [Concomitant]
     Indication: RHEUMATOID ARTHRITIS
     Route: 048
     Dates: start: 20120101
  7. TYLENOL W/ CODEINE NO. 3 [Concomitant]
     Indication: RHEUMATOID ARTHRITIS
     Dosage: I-II TABS ONCE IN 4 TO 6 HOURS AS NECESSARY
     Route: 048
     Dates: start: 20110101
  8. SLOW FE [Concomitant]
     Indication: MINERAL SUPPLEMENTATION
     Dosage: 1 TABLET ONCE DAILY
     Route: 048
  9. VITAMIN D [Concomitant]
     Indication: VITAMIN SUPPLEMENTATION
     Route: 048
  10. PLAQUENIL [Concomitant]
     Indication: RHEUMATOID ARTHRITIS
     Route: 048
     Dates: start: 20110812

REACTIONS (9)
  - FEELING ABNORMAL [None]
  - DIZZINESS [None]
  - DISORIENTATION [None]
  - PYREXIA [None]
  - DEHYDRATION [None]
  - BALANCE DISORDER [None]
  - FALL [None]
  - UPPER RESPIRATORY TRACT INFECTION [None]
  - PALPITATIONS [None]
